FAERS Safety Report 10643960 (Version 1)
Quarter: 2014Q4

REPORT INFORMATION
  Report Type: Spontaneous
  Country: US (occurrence: US)
  Receive Date: 20141210
  Receipt Date: 20141210
  Transmission Date: 20150529
  Serious: No
  Sender: FDA-Public Use
  Company Number: US-ELI_LILLY_AND_COMPANY-US201411008449

PATIENT
  Sex: Male

DRUGS (1)
  1. CIALIS [Suspect]
     Active Substance: TADALAFIL
     Dosage: 20 MG, UNK

REACTIONS (5)
  - Ocular hyperaemia [Unknown]
  - Anxiety [Unknown]
  - Wrong technique in drug usage process [Unknown]
  - Flushing [Unknown]
  - Exophthalmos [Unknown]
